FAERS Safety Report 4313758-7 (Version None)
Quarter: 2004Q1

REPORT INFORMATION
  Report Type: 
  Country: None (occurrence: None)
  Receive Date: 20040305
  Receipt Date: 20031223
  Transmission Date: 20041129
  Serious: Yes (Other)
  Sender: FDA-Public Use
  Company Number: USA-2003-0008879

PATIENT
  Age: 63 Year
  Sex: Female
  Weight: 81.6 kg

DRUGS (12)
  1. CHIROCAINE [Suspect]
     Indication: NERVE BLOCK
     Dosage: 25 ML, SINGLE
     Dates: start: 20030724, end: 20030724
  2. EPINEPHRINE [Suspect]
     Indication: ANAESTHESIA
     Dosage: 25 ML, SINGLE
     Dates: start: 20030724, end: 20030724
  3. VERSED [Suspect]
     Indication: SEDATION
     Dosage: 2 MG, SINGLE, INTRAVENOUS
     Route: 042
     Dates: start: 20030724, end: 20030724
  4. FENTANYL [Suspect]
     Indication: SEDATION
     Dosage: 100 MCG, SINGLE, INTRAVENOUS
     Route: 042
     Dates: start: 20030724, end: 20030724
  5. MEPIVACAINE HCL [Suspect]
     Indication: NERVE BLOCK
     Dosage: ML, SINGLE
     Dates: start: 20030724, end: 20030724
  6. ATENOLOL [Concomitant]
  7. ZOCOR [Concomitant]
  8. INDAPAMIDE [Concomitant]
  9. GLUCOPHAGE [Concomitant]
  10. BEXTRA [Concomitant]
  11. VIVELLE [Concomitant]
  12. MULTIVITAMIN [Concomitant]

REACTIONS (3)
  - ANAESTHETIC COMPLICATION [None]
  - CONVULSION [None]
  - OBSTRUCTIVE AIRWAYS DISORDER [None]
